FAERS Safety Report 26020045 (Version 2)
Quarter: 2025Q4

REPORT INFORMATION
  Report Type: Spontaneous
  Country: EU (occurrence: EU)
  Receive Date: 20251110
  Receipt Date: 20251219
  Transmission Date: 20260118
  Serious: Yes (Death)
  Sender: TEVA
  Company Number: None

PATIENT
  Age: 80 Year
  Sex: Female
  Weight: 83 kg

DRUGS (3)
  1. KETOPROFEN [Suspect]
     Active Substance: KETOPROFEN
     Indication: Joint injury
     Route: 048
     Dates: start: 20251015, end: 20251018
  2. COVERAM [Suspect]
     Active Substance: AMLODIPINE\PERINDOPRIL
     Indication: Hypertension
     Dosage: 5 MG/10 MG
     Route: 048
     Dates: start: 20250930, end: 20251018
  3. RAMIPRIL [Concomitant]
     Active Substance: RAMIPRIL
     Indication: Hypertension
     Route: 048
     Dates: start: 20250930

REACTIONS (2)
  - Acute kidney injury [Fatal]
  - Gastric ulcer [Fatal]

NARRATIVE: CASE EVENT DATE: 20251019
